FAERS Safety Report 6044003-2 (Version None)
Quarter: 2009Q1

REPORT INFORMATION
  Report Type: 
  Country: None (occurrence: None)
  Receive Date: 20090120
  Receipt Date: 20090108
  Transmission Date: 20090719
  Serious: Yes (Other)
  Sender: FDA-Public Use
  Company Number: BR-PFIZER INC-2008088545

PATIENT

DRUGS (5)
  1. CAVERJECT [Suspect]
     Dates: start: 19970101
  2. SIMVASTATIN [Concomitant]
  3. AMLODIPINE [Concomitant]
     Route: 065
     Dates: start: 20080201
  4. ATENOLOL [Concomitant]
     Route: 065
  5. RANITIDINE HYDROCHLORIDE [Concomitant]
     Route: 065

REACTIONS (4)
  - APPLICATION SITE ERYTHEMA [None]
  - BLOOD CHOLESTEROL INCREASED [None]
  - DRUG INEFFECTIVE [None]
  - NERVOUSNESS [None]
